FAERS Safety Report 17899655 (Version 1)
Quarter: 2020Q2

REPORT INFORMATION
  Report Type: Spontaneous
  Country: US (occurrence: US)
  Receive Date: 20200616
  Receipt Date: 20200616
  Transmission Date: 20200714
  Serious: Yes (Hospitalization, Other)
  Sender: FDA-Public Use
  Company Number: US-AUROBINDO-AUR-APL-2020-028892

PATIENT
  Age: 40 Year
  Sex: Female

DRUGS (3)
  1. METHYLPREDNISOLONE. [Suspect]
     Active Substance: METHYLPREDNISOLONE
     Indication: GLOMERULONEPHRITIS
     Dosage: 1 GRAM, 3 DOSES INTRAVENOUS PULSE
     Route: 042
  2. RITUXIMAB. [Suspect]
     Active Substance: RITUXIMAB
     Indication: GLOMERULONEPHRITIS
     Dosage: 375 MILLIGRAM/SQ. METER, EVERY WEEK
     Route: 042
  3. PREDNISONE. [Suspect]
     Active Substance: PREDNISONE
     Indication: GLOMERULONEPHRITIS
     Dosage: 1 MILLIGRAM/KILOGRAM, ONCE A DAY
     Route: 048

REACTIONS (3)
  - Oedema [Recovered/Resolved]
  - Hypoxia [Recovered/Resolved]
  - Posterior reversible encephalopathy syndrome [Recovered/Resolved]
